FAERS Safety Report 6010104-8 (Version None)
Quarter: 2008Q4

REPORT INFORMATION
  Report Type: 
  Country: None (occurrence: None)
  Receive Date: 20081216
  Receipt Date: 20081208
  Transmission Date: 20090506
  Serious: Yes (Other)
  Sender: FDA-Public Use
  Company Number: 2008SP025320

PATIENT
  Sex: Female

DRUGS (2)
  1. TEMOZOLOMIDE [Suspect]
     Indication: DRUG USE FOR UNKNOWN INDICATION
  2. PARACETAMOL [Concomitant]

REACTIONS (1)
  - HEPATITIS [None]
